FAERS Safety Report 7090203-2 (Version None)
Quarter: 2010Q4

REPORT INFORMATION
  Report Type: 
  Country: None (occurrence: None)
  Receive Date: 20101109
  Receipt Date: 20100302
  Transmission Date: 20110411
  Serious: Yes (Other)
  Sender: FDA-Public Use
  Company Number: US-ASTRAZENECA-2009SE17762

PATIENT
  Age: 561 Month
  Sex: Female

DRUGS (6)
  1. SEROQUEL [Suspect]
     Dosage: 300-900 MG
     Route: 048
     Dates: start: 20040705
  2. TOPAMAX [Concomitant]
     Dates: start: 20040619
  3. LORAZEPAM [Concomitant]
     Dates: start: 20040903
  4. GEODON [Concomitant]
     Dosage: TWO TIMWS A DAY,3 CAPSULES QHS
     Dates: start: 20080101
  5. LITHIUM [Concomitant]
     Dates: start: 20080101
  6. XANAX [Concomitant]
     Dates: start: 20090301

REACTIONS (2)
  - DIABETIC NEUROPATHY [None]
  - TYPE 2 DIABETES MELLITUS [None]
